FAERS Safety Report 4889329-0 (Version None)
Quarter: 2006Q1

REPORT INFORMATION
  Report Type: 
  Country: None (occurrence: None)
  Receive Date: 20060120
  Receipt Date: 20060113
  Transmission Date: 20060701
  Serious: Yes (Death, Hospitalization)
  Sender: FDA-Public Use
  Company Number: 200512955BWH

PATIENT
  Sex: Female

DRUGS (4)
  1. TRASYLOL [Suspect]
     Indication: CORONARY ARTERY SURGERY
     Dosage: 1 ML ONCE INTRAVENOUS, 200 ML ONCE INTRAVENOUS
     Route: 042
     Dates: start: 20050722
  2. TRASYLOL [Suspect]
     Indication: MITRAL VALVE REPAIR
     Dosage: 1 ML ONCE INTRAVENOUS, 200 ML ONCE INTRAVENOUS
     Route: 042
     Dates: start: 20050722
  3. TRASYLOL [Suspect]
     Indication: CORONARY ARTERY SURGERY
     Dosage: 1 ML ONCE INTRAVENOUS, 200 ML ONCE INTRAVENOUS
     Route: 042
     Dates: start: 20050722
  4. TRASYLOL [Suspect]
     Indication: MITRAL VALVE REPAIR
     Dosage: 1 ML ONCE INTRAVENOUS, 200 ML ONCE INTRAVENOUS
     Route: 042
     Dates: start: 20050722

REACTIONS (8)
  - CARDIAC VALVE REPLACEMENT COMPLICATION [None]
  - CORONARY ARTERY THROMBOSIS [None]
  - GENERAL PHYSICAL HEALTH DETERIORATION [None]
  - PLATELET COUNT DECREASED [None]
  - POST PROCEDURAL COMPLICATION [None]
  - PULMONARY EMBOLISM [None]
  - PULMONARY HAEMORRHAGE [None]
  - WOUND SECRETION [None]
